FAERS Safety Report 15256900 (Version 1)
Quarter: 2018Q3

REPORT INFORMATION
  Report Type: Spontaneous
  Country: JP (occurrence: JP)
  Receive Date: 20180808
  Receipt Date: 20180808
  Transmission Date: 20181010
  Serious: Yes (Other)
  Sender: FDA-Public Use
  Company Number: JP-PFIZER INC-2018306409

PATIENT

DRUGS (1)
  1. GENOTROPIN [Suspect]
     Active Substance: SOMATROPIN
     Dosage: 0.45 MG, 6X/WEEK
     Dates: start: 20180703, end: 20180726

REACTIONS (1)
  - Hyperthermia [Recovering/Resolving]

NARRATIVE: CASE EVENT DATE: 20180727
